FAERS Safety Report 7962804-8 (Version None)
Quarter: 2011Q4

REPORT INFORMATION
  Report Type: 
  Country: None (occurrence: None)
  Receive Date: 20111207
  Receipt Date: 20111129
  Transmission Date: 20120403
  Serious: Yes (Hospitalization)
  Sender: FDA-Public Use
  Company Number: US-ACTELION-A-US2011-57794

PATIENT

DRUGS (3)
  1. COUMADIN [Concomitant]
  2. FLOLAN [Suspect]
  3. TRACLEER [Suspect]
     Indication: PULMONARY ARTERIAL HYPERTENSION
     Dosage: UNK
     Route: 048
     Dates: start: 20030905

REACTIONS (2)
  - CATHETER SITE SWELLING [None]
  - CATHETER SITE ERYTHEMA [None]
